FAERS Safety Report 21102360 (Version 11)
Quarter: 2024Q1

REPORT INFORMATION
  Report Type: Report from Study
  Country: US (occurrence: US)
  Receive Date: 20220719
  Receipt Date: 20240122
  Transmission Date: 20240410
  Serious: Yes (Disabling, Other)
  Sender: FDA-Public Use
  Company Number: US-002147023-NVSC2022US161054

PATIENT
  Age: 51 Year
  Sex: Female

DRUGS (1)
  1. KESIMPTA [Suspect]
     Active Substance: OFATUMUMAB
     Indication: Multiple sclerosis
     Dosage: 20 MG
     Route: 065
     Dates: start: 202111

REACTIONS (7)
  - Gait disturbance [Unknown]
  - Multiple sclerosis [Unknown]
  - COVID-19 [Unknown]
  - Fatigue [Recovered/Resolved with Sequelae]
  - Mobility decreased [Unknown]
  - Drug effect less than expected [Unknown]
  - Weight increased [Unknown]

NARRATIVE: CASE EVENT DATE: 20220606
